FAERS Safety Report 25591877 (Version 1)
Quarter: 2025Q3

REPORT INFORMATION
  Report Type: Report from Study
  Country: US (occurrence: US)
  Receive Date: 20250722
  Receipt Date: 20250722
  Transmission Date: 20251021
  Serious: Yes (Other)
  Sender: ALEXION PHARMACEUTICALS
  Company Number: 202507USA004009US

PATIENT
  Sex: Female

DRUGS (1)
  1. OLAPARIB [Suspect]
     Active Substance: OLAPARIB
     Indication: Gallbladder cancer
     Dosage: 300 MILLIGRAM, BID
     Dates: start: 20250523

REACTIONS (1)
  - Thyroid disorder [Unknown]
